FAERS Safety Report 4639878-5 (Version None)
Quarter: 2005Q2

REPORT INFORMATION
  Report Type: 
  Country: None (occurrence: None)
  Receive Date: 20050418
  Receipt Date: 20050310
  Transmission Date: 20051028
  Serious: Yes (Hospitalization)
  Sender: FDA-Public Use
  Company Number: 2005BI004145

PATIENT
  Age: 43 Year
  Sex: Female
  Weight: 166.5 kg

DRUGS (6)
  1. NATALIZUMAB (NATALIZUMAB) [Suspect]
     Indication: RHEUMATOID ARTHRITIS
     Dosage: 300 MG; QM; IV
     Route: 042
     Dates: start: 20040909
  2. METHYLPREDNISOLONE [Concomitant]
  3. LANSOPRAZOLE [Concomitant]
  4. METHOTREXATE [Concomitant]
  5. FOLIC ACID [Concomitant]
  6. DICLOFENAC SODIUM [Concomitant]

REACTIONS (3)
  - COUGH [None]
  - NASOPHARYNGITIS [None]
  - SARCOIDOSIS [None]
